FAERS Safety Report 9471594 (Version 1)
Quarter: 2013Q3

REPORT INFORMATION
  Report Type: Spontaneous
  Country: IT (occurrence: None)
  Receive Date: 20130819
  Receipt Date: 20130819
  Transmission Date: 20140515
  Serious: Yes (Hospitalization)
  Sender: FDA-Public Use
  Company Number: B0915397A

PATIENT
  Age: 11 Year
  Sex: Male

DRUGS (4)
  1. AMOX. TRIHYD+POT+CLAVULAN [Suspect]
     Indication: PYREXIA
     Dosage: UNK/ UNK/ UNKNOWN THERAPY DATES 4 DAYS
  2. PARACETAMOL [Suspect]
     Indication: PYREXIA
     Dosage: UNK/UNK/ UNKNOWN THERAPY DATES 2 DAYS
  3. BECLOMETHASONE DIPROPIONATE [Suspect]
     Indication: UPPER RESPIRATORY TRACT INFECTION
     Dosage: UNK/ UNK/ UNKNOWN
  4. SALBUTAMOL SULPHATE  (FORMULATION UNKNOWN) (GENERIC) ALBUTEROL SULFATE) [Concomitant]
     Indication: UPPER RESPIRATORY TRACT INFECTION
     Dosage: UNK  /UNK / UNKNOWN

REACTIONS (1)
  - Stevens-Johnson syndrome [None]
